FAERS Safety Report 8642096 (Version 3)
Quarter: 2013Q2

REPORT INFORMATION
  Report Type: Spontaneous
  Country: US (occurrence: US)
  Receive Date: 20120628
  Receipt Date: 20130411
  Transmission Date: 20140414
  Serious: No
  Sender: FDA-Public Use
  Company Number: US-ASTRAZENECA-2011SE40323

PATIENT
  Age: 62 Year
  Sex: Female

DRUGS (2)
  1. SEROQUEL XR [Suspect]
     Route: 048
  2. SEROQUEL XR [Suspect]
     Route: 048

REACTIONS (7)
  - Malaise [Unknown]
  - Bipolar disorder [Unknown]
  - Cystitis [Unknown]
  - Cough [Unknown]
  - Bronchitis [Unknown]
  - Adverse event [Unknown]
  - Blood cholesterol increased [Unknown]
